FAERS Safety Report 9011197 (Version 1)
Quarter: 2013Q1

REPORT INFORMATION
  Report Type: Spontaneous
  Country: US (occurrence: US)
  Receive Date: 20130109
  Receipt Date: 20130109
  Transmission Date: 20140127
  Serious: Yes (Death)
  Sender: FDA-Public Use
  Company Number: US-PFIZER INC-2013006081

PATIENT
  Age: 65 Year
  Sex: Male

DRUGS (7)
  1. GABAPENTIN [Suspect]
  2. METOPROLOL [Suspect]
  3. QUETIAPINE [Suspect]
  4. ESCITALOPRAM [Suspect]
  5. ACETAMINOPHEN W/CODEINE [Suspect]
  6. ESZOPICLONE [Suspect]
  7. SIMVASTATIN [Suspect]

REACTIONS (1)
  - Completed suicide [Fatal]
